FAERS Safety Report 10049963 (Version 1)
Quarter: 2014Q2

REPORT INFORMATION
  Report Type: Spontaneous
  Country: AU (occurrence: AU)
  Receive Date: 20140401
  Receipt Date: 20140401
  Transmission Date: 20141212
  Serious: Yes (Hospitalization)
  Sender: FDA-Public Use
  Company Number: AU-SA-2014SA034713

PATIENT
  Sex: Female

DRUGS (3)
  1. CLEXANE [Suspect]
     Indication: CEREBROVASCULAR ACCIDENT
     Route: 065
  2. FORTEO [Suspect]
     Indication: OSTEOPOROSIS
     Route: 065
     Dates: start: 20120525
  3. WARFARIN SODIUM [Suspect]
     Indication: TACHYCARDIA
     Route: 065

REACTIONS (6)
  - Contusion [Recovered/Resolved]
  - Tachycardia [Recovered/Resolved]
  - Cerebrovascular accident [Recovered/Resolved]
  - Muscle spasms [Unknown]
  - Haematoma [Recovered/Resolved]
  - Drug dose omission [Unknown]
